FAERS Safety Report 15374009 (Version 1)
Quarter: 2018Q3

REPORT INFORMATION
  Report Type: Spontaneous
  Country: US (occurrence: US)
  Receive Date: 20180912
  Receipt Date: 20180912
  Transmission Date: 20181010
  Serious: No
  Sender: FDA-Public Use
  Company Number: US-TEVA-2018-US-952459

PATIENT
  Sex: Female

DRUGS (1)
  1. CLONAZEPAM. [Suspect]
     Active Substance: CLONAZEPAM
     Route: 065

REACTIONS (6)
  - Injury [Unknown]
  - Sexual dysfunction [Unknown]
  - Memory impairment [Unknown]
  - Amnesia [Not Recovered/Not Resolved]
  - Insomnia [Unknown]
  - Cerebral disorder [Unknown]
